FAERS Safety Report 18143002 (Version 3)
Quarter: 2020Q3

REPORT INFORMATION
  Report Type: Report from Study
  Country: DE (occurrence: DE)
  Receive Date: 20200813
  Receipt Date: 20200827
  Transmission Date: 20201103
  Serious: Yes (Hospitalization, Other)
  Sender: FDA-Public Use
  Company Number: DE-AMGEN-DEUCT2020127708

PATIENT
  Age: 38 Year
  Sex: Male
  Weight: 81 kg

DRUGS (3)
  1. NIVOLUMAB [Suspect]
     Active Substance: NIVOLUMAB
     Indication: METASTATIC MALIGNANT MELANOMA
     Dosage: UNK
     Route: 042
     Dates: end: 20200730
  2. DENOSUMAB [Suspect]
     Active Substance: DENOSUMAB
     Indication: METASTATIC MALIGNANT MELANOMA
     Dosage: 120 MILLIGRAM
     Route: 058
     Dates: start: 20200710
  3. IPILIMUMAB [Suspect]
     Active Substance: IPILIMUMAB
     Indication: METASTATIC MALIGNANT MELANOMA
     Dosage: UNK
     Route: 042
     Dates: end: 20200730

REACTIONS (2)
  - Sepsis [Recovered/Resolved]
  - Immune-mediated hepatitis [Recovered/Resolved with Sequelae]

NARRATIVE: CASE EVENT DATE: 20200806
